FAERS Safety Report 4512173-0 (Version None)
Quarter: 2004Q4

REPORT INFORMATION
  Report Type: 
  Country: None (occurrence: None)
  Receive Date: 20041129
  Receipt Date: 20041118
  Transmission Date: 20050328
  Serious: Yes (Death)
  Sender: FDA-Public Use
  Company Number: US-ROCHE-386785

PATIENT
  Age: 5 Month
  Sex: Female

DRUGS (1)
  1. ROCEPHIN [Suspect]
     Indication: MENINGITIS
     Dosage: DOSAGE REGIMEN REPORTED AS 1GM X 1
     Route: 065
     Dates: start: 20040615, end: 20040615

REACTIONS (2)
  - HERNIA [None]
  - PATHOGEN RESISTANCE [None]
